FAERS Safety Report 24276744 (Version 3)
Quarter: 2025Q3

REPORT INFORMATION
  Report Type: Spontaneous
  Country: EU (occurrence: EU)
  Receive Date: 20240903
  Receipt Date: 20250802
  Transmission Date: 20251020
  Serious: Yes (Life-Threatening, Other)
  Sender: ALEXION PHARMACEUTICALS
  Company Number: None

PATIENT
  Age: 46 Year
  Sex: Female

DRUGS (2)
  1. FASLODEX [Suspect]
     Active Substance: FULVESTRANT
     Indication: Breast cancer
     Dates: start: 20210623, end: 20240716
  2. FASLODEX [Suspect]
     Active Substance: FULVESTRANT
     Dates: start: 20210623, end: 20240716

REACTIONS (2)
  - Anaphylactic reaction [Recovered/Resolved]
  - Hyperhidrosis [Recovered/Resolved]

NARRATIVE: CASE EVENT DATE: 20240716
